FAERS Safety Report 24974898 (Version 1)
Quarter: 2025Q1

REPORT INFORMATION
  Report Type: Spontaneous
  Country: US (occurrence: US)
  Receive Date: 20250217
  Receipt Date: 20250217
  Transmission Date: 20250409
  Serious: No
  Sender: LUPIN
  Company Number: None

PATIENT

DRUGS (1)
  1. BUPROPION HYDROCHLORIDE XL [Suspect]
     Active Substance: BUPROPION HYDROCHLORIDE
     Indication: Product used for unknown indication
     Route: 065

REACTIONS (7)
  - Insomnia [Unknown]
  - Palpitations [Unknown]
  - Arthralgia [Unknown]
  - Oedema [Unknown]
  - Treatment failure [Unknown]
  - Inappropriate schedule of product discontinuation [Unknown]
  - Product substitution issue [Unknown]
